FAERS Safety Report 19510034 (Version 2)
Quarter: 2021Q3

REPORT INFORMATION
  Report Type: Spontaneous
  Country: IT (occurrence: IT)
  Receive Date: 20210708
  Receipt Date: 20210716
  Transmission Date: 20211014
  Serious: Yes (Other)
  Sender: FDA-Public Use
  Company Number: IT-UCBSA-2021032401

PATIENT
  Age: 5 Year
  Sex: Female

DRUGS (11)
  1. LEVETIRACETAM. [Suspect]
     Active Substance: LEVETIRACETAM
     Indication: GENERALISED TONIC-CLONIC SEIZURE
     Dosage: UNKNOWN DOSE
  2. LAMOTRIGINE. [Suspect]
     Active Substance: LAMOTRIGINE
     Indication: GENERALISED TONIC-CLONIC SEIZURE
     Dosage: UNKNOWN DOSE
  3. CARBAMAZEPINE. [Suspect]
     Active Substance: CARBAMAZEPINE
     Indication: GENERALISED TONIC-CLONIC SEIZURE
     Dosage: UNKNOWN DOSE
  4. NITRAZEPAM [Concomitant]
     Active Substance: NITRAZEPAM
     Indication: GENERALISED TONIC-CLONIC SEIZURE
     Dosage: 5 MILLIGRAM DAILY; ALONG WITH PERAMPANEL
  5. PERAMPANEL [Suspect]
     Active Substance: PERAMPANEL
     Indication: EPILEPTIC ENCEPHALOPATHY
     Dosage: 6 MILLIGRAM DAILY; LAST DOSAGE
  6. PERAMPANEL [Suspect]
     Active Substance: PERAMPANEL
     Dosage: 4 MILLIGRAM DAILY; UPTITRATED IN SECOND AND THIRD MONTH
  7. VALPROIC ACID. [Suspect]
     Active Substance: VALPROIC ACID
     Indication: GENERALISED TONIC-CLONIC SEIZURE
     Dosage: 30 MG/KG DAILY
  8. ACTH [Suspect]
     Active Substance: CORTICOTROPIN
     Indication: GENERALISED TONIC-CLONIC SEIZURE
     Dosage: UNKNOWN DOSE
  9. HYDROCORTISONE. [Suspect]
     Active Substance: HYDROCORTISONE
     Indication: GENERALISED TONIC-CLONIC SEIZURE
     Dosage: UNKNOWN DOSE
  10. PERAMPANEL [Suspect]
     Active Substance: PERAMPANEL
     Dosage: 5 MILLIGRAM DAILY DUE TO MILD RELAPSES
  11. PERAMPANEL [Suspect]
     Active Substance: PERAMPANEL
     Dosage: 2 MILLIGRAM DAILY

REACTIONS (2)
  - Seizure [Recovered/Resolved]
  - Multiple-drug resistance [Unknown]
